FAERS Safety Report 24463186 (Version 1)
Quarter: 2024Q4

REPORT INFORMATION
  Report Type: Report from Study
  Country: US (occurrence: US)
  Receive Date: 20241018
  Receipt Date: 20241018
  Transmission Date: 20250115
  Serious: No
  Sender: ROCHE
  Company Number: US-ROCHE-2562131

PATIENT
  Age: 78 Year
  Sex: Female
  Weight: 79.0 kg

DRUGS (7)
  1. XOLAIR [Suspect]
     Active Substance: OMALIZUMAB
     Indication: Bronchitis
     Dosage: INJECT 375MG SUBCUTANEOUSLY EVERY 2 WEEK(S).?DATE OF TRETMENET 27/APR/2018, 23/MAY/2018, 27/JUL/2018
     Route: 058
  2. XOLAIR [Suspect]
     Active Substance: OMALIZUMAB
     Indication: Asthma
  3. XOLAIR [Suspect]
     Active Substance: OMALIZUMAB
     Indication: Asthma
  4. SYNTHROID [Concomitant]
     Active Substance: LEVOTHYROXINE SODIUM
     Route: 048
  5. NITROFURANTOIN [Concomitant]
     Active Substance: NITROFURANTOIN
     Route: 048
  6. EPIPEN [Concomitant]
     Active Substance: EPINEPHRINE
  7. AMLODIPINE [Concomitant]
     Active Substance: AMLODIPINE BESYLATE

REACTIONS (3)
  - Off label use [Unknown]
  - No adverse event [Unknown]
  - Off label use [Unknown]
